FAERS Safety Report 5612088-0 (Version None)
Quarter: 2008Q1

REPORT INFORMATION
  Report Type: 
  Country: None (occurrence: None)
  Receive Date: 20080204
  Receipt Date: 20080124
  Transmission Date: 20080703
  Serious: Yes (Other)
  Sender: FDA-Public Use
  Company Number: PHNR2008AU00508

PATIENT
  Sex: Female

DRUGS (2)
  1. VOLTAREN [Suspect]
     Indication: DYSMENORRHOEA
     Dosage: 4 TABLETS
     Dates: start: 20080122
  2. VOLTAREN [Suspect]
     Dosage: 2 TABLETS
     Dates: start: 20080124

REACTIONS (8)
  - DISTURBANCE IN ATTENTION [None]
  - DIZZINESS [None]
  - FEELING ABNORMAL [None]
  - HEADACHE [None]
  - HYPOAESTHESIA [None]
  - HYPOVENTILATION [None]
  - MALAISE [None]
  - SPEECH DISORDER [None]
